FAERS Safety Report 5055697-2 (Version None)
Quarter: 2006Q3

REPORT INFORMATION
  Report Type: 
  Country: None (occurrence: None)
  Receive Date: 20060713
  Receipt Date: 20060707
  Transmission Date: 20061208
  Serious: Yes (Hospitalization, Other)
  Sender: FDA-Public Use
  Company Number: HQWYE012507JUN06

PATIENT
  Age: 30 Year
  Sex: Male
  Weight: 97.16 kg

DRUGS (9)
  1. RAPAMUNE [Suspect]
     Indication: PROPHYLAXIS AGAINST TRANSPLANT REJECTION
     Dosage: 10 MG 1X PER 1 DAY, ORAL
     Route: 048
     Dates: start: 20060603
  2. HYDRALAZINE HCL [Concomitant]
  3. LABETALOL HCL [Concomitant]
  4. NILSTAT (NYSTATIN) [Concomitant]
  5. BACTRIM [Concomitant]
  6. NEXIUM [Concomitant]
  7. NIFEDIPINE [Concomitant]
  8. FENOLDOPAM             (FENOLDOPAM) [Concomitant]
  9. CLONIDINE [Concomitant]

REACTIONS (9)
  - ANAEMIA [None]
  - DIALYSIS [None]
  - DRUG INEFFECTIVE [None]
  - KIDNEY TRANSPLANT REJECTION [None]
  - LEUKOPENIA [None]
  - RENAL TUBULAR NECROSIS [None]
  - RENAL VEIN OCCLUSION [None]
  - THROMBOCYTOPENIA [None]
  - VASCULAR STENOSIS [None]
